FAERS Safety Report 5406577-1 (Version None)
Quarter: 2007Q3

REPORT INFORMATION
  Report Type: 
  Country: None (occurrence: None)
  Receive Date: 20070806
  Receipt Date: 20070725
  Transmission Date: 20080115
  Serious: Yes (Life-Threatening, Hospitalization, Other)
  Sender: FDA-Public Use
  Company Number: JP-PFIZER INC-2007057176

PATIENT
  Sex: Female
  Weight: 38 kg

DRUGS (5)
  1. ZOLOFT [Suspect]
     Indication: DEPRESSION
     Route: 048
     Dates: start: 20070529, end: 20070705
  2. ZYPREXA [Suspect]
     Indication: DELUSION
     Route: 048
     Dates: start: 20070702, end: 20070702
  3. TRAZODONE HCL [Concomitant]
     Route: 048
  4. PANTOSIN [Concomitant]
     Route: 048
  5. MAGVIT [Concomitant]
     Route: 048
     Dates: start: 20070509

REACTIONS (24)
  - ACTIVITIES OF DAILY LIVING IMPAIRED [None]
  - AGITATION [None]
  - ALTERED STATE OF CONSCIOUSNESS [None]
  - ANXIETY [None]
  - BLOOD CREATINE PHOSPHOKINASE INCREASED [None]
  - COMPULSIONS [None]
  - DELUSION [None]
  - DELUSION OF REFERENCE [None]
  - DEPRESSIVE SYMPTOM [None]
  - DYSTONIA [None]
  - HEPATIC FUNCTION ABNORMAL [None]
  - HYPERHIDROSIS [None]
  - HYPOKINESIA [None]
  - INSOMNIA [None]
  - IRRITABILITY [None]
  - LACK OF SPONTANEOUS SPEECH [None]
  - MUSCLE TIGHTNESS [None]
  - NEUROLEPTIC MALIGNANT SYNDROME [None]
  - ORAL INTAKE REDUCED [None]
  - PERSECUTORY DELUSION [None]
  - PYREXIA [None]
  - SEROTONIN SYNDROME [None]
  - THINKING ABNORMAL [None]
  - TREMOR [None]
